FAERS Safety Report 14230421 (Version 6)
Quarter: 2024Q3

REPORT INFORMATION
  Report Type: Spontaneous
  Country: DE (occurrence: DE)
  Receive Date: 20171128
  Receipt Date: 20240821
  Transmission Date: 20241017
  Serious: Yes (Other)
  Sender: PFIZER
  Company Number: DE-PFIZER INC-2017505746

PATIENT
  Age: 64 Year
  Sex: Female

DRUGS (1)
  1. DOCETAXEL [Suspect]
     Active Substance: DOCETAXEL\DOCETAXEL ANHYDROUS
     Indication: Breast cancer
     Dosage: UNK, CYCLIC (4-CYCLE DOCETAXEL-BASED CHEMOTHERAPY)

REACTIONS (2)
  - Hydrocephalus [Recovered/Resolved]
  - Polyneuropathy [Recovered/Resolved]
